FAERS Safety Report 7421175-6 (Version None)
Quarter: 2011Q2

REPORT INFORMATION
  Report Type: 
  Country: None (occurrence: None)
  Receive Date: 20110418
  Receipt Date: 20110408
  Transmission Date: 20111010
  Serious: Yes (Disabling)
  Sender: FDA-Public Use
  Company Number: AU-ASTRAZENECA-2011SE20014

PATIENT
  Sex: Female

DRUGS (3)
  1. AMOXICILLIN TRIHYDRATE [Suspect]
  2. CLARITHROMYCIN [Suspect]
  3. NEXIUM [Suspect]
     Indication: HELICOBACTER INFECTION
     Route: 048
     Dates: start: 20110326

REACTIONS (2)
  - HELICOBACTER TEST POSITIVE [None]
  - DRUG INEFFECTIVE [None]
